FAERS Safety Report 4687729-5 (Version None)
Quarter: 2005Q2

REPORT INFORMATION
  Report Type: 
  Country: None (occurrence: None)
  Receive Date: 20050610
  Receipt Date: 20050407
  Transmission Date: 20051028
  Serious: Yes (Other)
  Sender: FDA-Public Use
  Company Number: US-MERCK-0504USA00947

PATIENT
  Age: 71 Year
  Sex: Male

DRUGS (6)
  1. PRINIVIL [Suspect]
     Indication: HYPERTENSION
     Route: 048
     Dates: start: 20041201, end: 20050301
  2. PRINIVIL [Suspect]
     Route: 048
     Dates: start: 20050408
  3. HUMALOG [Concomitant]
     Route: 065
  4. [THERAPY UNSPECIFIED] [Concomitant]
     Route: 065
  5. TOPROL-XL [Concomitant]
     Route: 065
  6. GLUCOTROL XL [Concomitant]
     Route: 065

REACTIONS (2)
  - DRUG INEFFECTIVE [None]
  - HYPERTENSION [None]
